FAERS Safety Report 8648247 (Version 11)
Quarter: 2014Q3

REPORT INFORMATION
  Report Type: Report from Study
  Country: SE (occurrence: SE)
  Receive Date: 20120703
  Receipt Date: 20140804
  Transmission Date: 20150326
  Serious: Yes (Death, Hospitalization, Other)
  Sender: FDA-Public Use
  Company Number: SE-BRISTOL-MYERS SQUIBB COMPANY-16714321

PATIENT
  Age: 38 Year
  Sex: Female

DRUGS (11)
  1. PREDNISOLONE. [Concomitant]
     Active Substance: PREDNISOLONE
     Route: 048
     Dates: start: 20120613
  2. METHYLPREDNISOLONE [Concomitant]
     Active Substance: METHYLPREDNISOLONE
     Route: 042
     Dates: start: 20120905
  3. MYCOPHENOLATE MOFETIL. [Concomitant]
     Active Substance: MYCOPHENOLATE MOFETIL
     Route: 048
     Dates: start: 20120909
  4. BUDESONIDE. [Concomitant]
     Active Substance: BUDESONIDE
     Dosage: ORAL INHALATION
     Route: 055
     Dates: start: 20040310
  5. TERBUTALINE [Concomitant]
     Active Substance: TERBUTALINE
     Dosage: ORAL INHALATION
     Route: 055
     Dates: start: 20040310
  6. IPILIMUMAB [Suspect]
     Active Substance: IPILIMUMAB
     Indication: MALIGNANT MELANOMA
     Dosage: 1 DF = 3 OR 10 MG/KG. COURSE 4
     Route: 042
     Dates: start: 20120522, end: 20120827
  7. DIKLOFENAK [Concomitant]
     Active Substance: DICLOFENAC SODIUM
     Route: 054
     Dates: start: 20101001
  8. LEVOTHYROXINE [Concomitant]
     Active Substance: LEVOTHYROXINE
     Route: 048
     Dates: start: 20120716
  9. OMEPRAZOL [Concomitant]
     Active Substance: OMEPRAZOLE
     Route: 048
     Dates: start: 20120614
  10. BISOPROLOL [Concomitant]
     Active Substance: BISOPROLOL
     Route: 048
     Dates: start: 20120613
  11. EVEROLIMUS [Concomitant]
     Active Substance: EVEROLIMUS
     Route: 048
     Dates: start: 20120912

REACTIONS (7)
  - Pain in extremity [Not Recovered/Not Resolved]
  - Central nervous system haemorrhage [Fatal]
  - Eye pain [Recovered/Resolved with Sequelae]
  - Abdominal pain [Recovered/Resolved]
  - Transaminases increased [Not Recovered/Not Resolved]
  - Metastases to central nervous system [Fatal]
  - Embolism [Recovered/Resolved]

NARRATIVE: CASE EVENT DATE: 20120625
